FAERS Safety Report 16216371 (Version 1)
Quarter: 2019Q2

REPORT INFORMATION
  Report Type: Spontaneous
  Country: CA (occurrence: CA)
  Receive Date: 20190419
  Receipt Date: 20190419
  Transmission Date: 20190711
  Serious: Yes (Other)
  Sender: FDA-Public Use
  Company Number: CA-AUROBINDO-AUR-APL-2019-020320

PATIENT

DRUGS (1)
  1. TADALAFIL. [Suspect]
     Active Substance: TADALAFIL
     Indication: PULMONARY ARTERIAL HYPERTENSION
     Dosage: 40 MILLIGRAM, UNK
     Route: 065

REACTIONS (6)
  - Dyspnoea [Unknown]
  - Musculoskeletal disorder [Unknown]
  - Malaise [Unknown]
  - Feeling cold [Unknown]
  - Mobility decreased [Unknown]
  - Peripheral coldness [Unknown]
